FAERS Safety Report 6703785-4 (Version None)
Quarter: 2010Q2

REPORT INFORMATION
  Report Type: 
  Country: None (occurrence: None)
  Receive Date: 20100430
  Receipt Date: 20100422
  Transmission Date: 20101027
  Serious: Yes (Other)
  Sender: FDA-Public Use
  Company Number: US-ROCHE-634922

PATIENT
  Sex: Female

DRUGS (12)
  1. BONIVA [Suspect]
     Indication: OSTEOPOROSIS
     Route: 048
  2. BONIVA [Suspect]
     Route: 048
     Dates: start: 20081201
  3. FOSAMAX [Suspect]
     Indication: DRUG USE FOR UNKNOWN INDICATION
     Route: 065
  4. ACTONEL [Suspect]
     Indication: DRUG USE FOR UNKNOWN INDICATION
     Route: 065
  5. LYRICA [Concomitant]
     Indication: PAIN
  6. COUMADIN [Concomitant]
     Indication: ATRIAL FIBRILLATION
  7. XANAX [Concomitant]
     Indication: INSOMNIA
     Dosage: WHEN NEEDED
  8. COZAAR [Concomitant]
     Dosage: DRUG: COZAR
  9. VIACTIV [Concomitant]
     Dosage: DRUG: VIACTIVE WITHOUT VIT. K
  10. CALTRATE [Concomitant]
  11. ALPRAZOLAM [Concomitant]
     Dosage: DRUG: GENERIC XANAX
  12. FLECAINIDE [Concomitant]
     Dosage: DRUG: FLECAMIDE

REACTIONS (7)
  - ATRIAL FIBRILLATION [None]
  - BLOOD DISORDER [None]
  - BREAST CANCER [None]
  - FALL [None]
  - HERPES ZOSTER [None]
  - PAIN [None]
  - PELVIC FRACTURE [None]
